FAERS Safety Report 5235893-1 (Version None)
Quarter: 2007Q1

REPORT INFORMATION
  Report Type: 
  Country: None (occurrence: None)
  Receive Date: 20061208
  Receipt Date: 20051221
  Transmission Date: 20070707
  Serious: Yes (Other)
  Sender: FDA-Public Use
  Company Number: 2005UW19246

PATIENT
  Age: 38 Year
  Sex: Female

DRUGS (3)
  1. CRESTOR [Suspect]
     Indication: BLOOD CHOLESTEROL INCREASED
     Dosage: 10 MG PO
     Route: 048
     Dates: start: 20051201
  2. METFORMIN HCL [Concomitant]
  3. PRENATAL VITAMINS [Concomitant]

REACTIONS (1)
  - PREGNANCY TEST NEGATIVE [None]
